FAERS Safety Report 23382904 (Version 1)
Quarter: 2024Q1

REPORT INFORMATION
  Report Type: Spontaneous
  Country: US (occurrence: None)
  Receive Date: 20240109
  Receipt Date: 20240109
  Transmission Date: 20240410
  Serious: Yes (Hospitalization)
  Sender: FDA-Public Use
  Company Number: None

PATIENT
  Sex: Male
  Weight: 106.6 kg

DRUGS (4)
  1. FLUOROURACIL [Suspect]
     Active Substance: FLUOROURACIL
     Dates: end: 20231031
  2. CAMPTOSAR [Suspect]
     Active Substance: IRINOTECAN HYDROCHLORIDE
     Dates: end: 20231031
  3. LEUCOVORIN CALCIUM [Suspect]
     Active Substance: LEUCOVORIN CALCIUM
     Dates: end: 20231031
  4. ELOXATIN [Suspect]
     Active Substance: OXALIPLATIN
     Dates: end: 20231031

REACTIONS (5)
  - Pulmonary embolism [None]
  - Tachycardia [None]
  - Therapy cessation [None]
  - Haemoptysis [None]
  - Pulmonary infarction [None]

NARRATIVE: CASE EVENT DATE: 20231110
